FAERS Safety Report 13285847 (Version 2)
Quarter: 2017Q1

REPORT INFORMATION
  Report Type: Report from Study
  Country: US (occurrence: US)
  Receive Date: 20170302
  Receipt Date: 20170303
  Transmission Date: 20170428
  Serious: Yes (Hospitalization, Other)
  Sender: FDA-Public Use
  Company Number: US-JNJFOC-20150823760

PATIENT
  Age: 66 Year
  Sex: Male

DRUGS (41)
  1. RITUXAN [Suspect]
     Active Substance: RITUXIMAB
     Indication: CHRONIC LYMPHOCYTIC LEUKAEMIA
     Route: 042
     Dates: start: 20140529
  2. RITUXAN [Suspect]
     Active Substance: RITUXIMAB
     Indication: CHRONIC LYMPHOCYTIC LEUKAEMIA
     Route: 042
     Dates: start: 20170118
  3. PROCHLORPERAZINE. [Concomitant]
     Active Substance: PROCHLORPERAZINE
  4. PREDNISONE. [Concomitant]
     Active Substance: PREDNISONE
  5. HYDROCODONE [Concomitant]
     Active Substance: HYDROCODONE
  6. ATIVAN [Concomitant]
     Active Substance: LORAZEPAM
  7. IMBRUVICA [Suspect]
     Active Substance: IBRUTINIB
     Indication: CHRONIC LYMPHOCYTIC LEUKAEMIA
     Route: 048
     Dates: start: 20140528
  8. IMBRUVICA [Suspect]
     Active Substance: IBRUTINIB
     Indication: CHRONIC LYMPHOCYTIC LEUKAEMIA
     Route: 048
     Dates: start: 20150120, end: 20150504
  9. RITUXAN [Suspect]
     Active Substance: RITUXIMAB
     Indication: CHRONIC LYMPHOCYTIC LEUKAEMIA
     Route: 042
     Dates: start: 20140619
  10. XANAX [Concomitant]
     Active Substance: ALPRAZOLAM
  11. SINGULAIR [Concomitant]
     Active Substance: MONTELUKAST SODIUM
  12. IMBRUVICA [Suspect]
     Active Substance: IBRUTINIB
     Indication: CHRONIC LYMPHOCYTIC LEUKAEMIA
     Route: 048
     Dates: start: 20170118
  13. RITUXAN [Suspect]
     Active Substance: RITUXIMAB
     Indication: CHRONIC LYMPHOCYTIC LEUKAEMIA
     Route: 042
     Dates: start: 20140814
  14. RITUXAN [Suspect]
     Active Substance: RITUXIMAB
     Indication: CHRONIC LYMPHOCYTIC LEUKAEMIA
     Route: 042
     Dates: start: 20170208
  15. RITUXAN [Suspect]
     Active Substance: RITUXIMAB
     Indication: CHRONIC LYMPHOCYTIC LEUKAEMIA
     Route: 042
     Dates: start: 20140730
  16. PANTOPRAZOLE [Concomitant]
     Active Substance: PANTOPRAZOLE SODIUM
  17. VALTREX [Concomitant]
     Active Substance: VALACYCLOVIR HYDROCHLORIDE
  18. IMBRUVICA [Suspect]
     Active Substance: IBRUTINIB
     Indication: CHRONIC LYMPHOCYTIC LEUKAEMIA
     Route: 048
  19. NEULASTA [Suspect]
     Active Substance: PEGFILGRASTIM
     Indication: CHRONIC LYMPHOCYTIC LEUKAEMIA
     Route: 065
     Dates: start: 20140825
  20. RITUXAN [Suspect]
     Active Substance: RITUXIMAB
     Indication: CHRONIC LYMPHOCYTIC LEUKAEMIA
     Route: 042
     Dates: start: 20140722
  21. TAMIFLU [Suspect]
     Active Substance: OSELTAMIVIR PHOSPHATE
     Indication: PRODUCT USED FOR UNKNOWN INDICATION
     Route: 048
     Dates: start: 20160318
  22. NEULASTA [Suspect]
     Active Substance: PEGFILGRASTIM
     Indication: CHRONIC LYMPHOCYTIC LEUKAEMIA
     Route: 065
     Dates: start: 20170126
  23. NEULASTA [Suspect]
     Active Substance: PEGFILGRASTIM
     Indication: CHRONIC LYMPHOCYTIC LEUKAEMIA
     Route: 065
     Dates: start: 20150710
  24. BENTYL [Concomitant]
     Active Substance: DICYCLOMINE HYDROCHLORIDE
  25. IMBRUVICA [Suspect]
     Active Substance: IBRUTINIB
     Indication: CHRONIC LYMPHOCYTIC LEUKAEMIA
     Route: 048
     Dates: start: 201612
  26. RITUXAN [Suspect]
     Active Substance: RITUXIMAB
     Indication: CHRONIC LYMPHOCYTIC LEUKAEMIA
     Route: 042
     Dates: start: 20140807
  27. FILGRASTIM [Suspect]
     Active Substance: FILGRASTIM
     Indication: CHRONIC LYMPHOCYTIC LEUKAEMIA
     Dates: start: 20170116
  28. IMBRUVICA [Suspect]
     Active Substance: IBRUTINIB
     Indication: CHRONIC LYMPHOCYTIC LEUKAEMIA
     Route: 048
     Dates: start: 20150926, end: 201612
  29. RITUXAN [Suspect]
     Active Substance: RITUXIMAB
     Indication: CHRONIC LYMPHOCYTIC LEUKAEMIA
     Route: 042
     Dates: start: 20140612
  30. FILGRASTIM [Suspect]
     Active Substance: FILGRASTIM
     Indication: CHRONIC LYMPHOCYTIC LEUKAEMIA
     Dates: start: 20170111, end: 20170114
  31. COLCRYS [Concomitant]
     Active Substance: COLCHICINE
  32. LOPERAMIDE [Concomitant]
     Active Substance: LOPERAMIDE
  33. ULTRAM [Concomitant]
     Active Substance: TRAMADOL HYDROCHLORIDE
  34. MOBIC [Concomitant]
     Active Substance: MELOXICAM
  35. DYMISTA [Concomitant]
     Active Substance: AZELASTINE HYDROCHLORIDE\FLUTICASONE PROPIONATE
  36. FLUTICASONE. [Concomitant]
     Active Substance: FLUTICASONE
  37. IMBRUVICA [Suspect]
     Active Substance: IBRUTINIB
     Indication: CHRONIC LYMPHOCYTIC LEUKAEMIA
     Route: 048
     Dates: start: 20150505, end: 20150806
  38. IMBRUVICA [Suspect]
     Active Substance: IBRUTINIB
     Indication: CHRONIC LYMPHOCYTIC LEUKAEMIA
     Route: 048
     Dates: start: 20140527, end: 20141210
  39. NEULASTA [Suspect]
     Active Substance: PEGFILGRASTIM
     Indication: CHRONIC LYMPHOCYTIC LEUKAEMIA
     Route: 065
     Dates: start: 20141006
  40. CHLORPHENAMINE MALEATE [Concomitant]
     Active Substance: CHLORPHENIRAMINE MALEATE
  41. PROTONIX [Concomitant]
     Active Substance: PANTOPRAZOLE SODIUM

REACTIONS (49)
  - Hypersensitivity vasculitis [Unknown]
  - Pyrexia [Unknown]
  - Squamous cell carcinoma [Unknown]
  - White blood cell count decreased [Unknown]
  - Hair texture abnormal [Unknown]
  - Urticaria [Unknown]
  - Arthralgia [Not Recovered/Not Resolved]
  - Post procedural inflammation [Unknown]
  - Hypogammaglobulinaemia [Unknown]
  - Onychomadesis [Unknown]
  - Drug ineffective [Recovered/Resolved]
  - Abdominal pain [Unknown]
  - Wound drainage [Unknown]
  - Cellulitis staphylococcal [Unknown]
  - Pneumonia [Unknown]
  - Dysgeusia [Unknown]
  - Respiratory tract congestion [Unknown]
  - Pruritus [Unknown]
  - Gingival pain [Unknown]
  - Toothache [Unknown]
  - Oral discomfort [Unknown]
  - Insomnia [Unknown]
  - Secretion discharge [Unknown]
  - Fatigue [Unknown]
  - Postoperative wound complication [Unknown]
  - Atrioventricular block first degree [Unknown]
  - Melanocytic naevus [Unknown]
  - Rash [Unknown]
  - Cholecystitis acute [Unknown]
  - Hypoxia [Unknown]
  - Dry mouth [Unknown]
  - Diarrhoea [Not Recovered/Not Resolved]
  - Pancytopenia [Unknown]
  - Basal cell carcinoma [Unknown]
  - Tongue discomfort [Unknown]
  - Thirst [Unknown]
  - Abdominal discomfort [Unknown]
  - Influenza like illness [Unknown]
  - Platelet count decreased [Unknown]
  - Atelectasis [Unknown]
  - Peripheral swelling [Unknown]
  - Pain in extremity [Unknown]
  - Nasal dryness [Unknown]
  - Sensitivity of teeth [Unknown]
  - Immune system disorder [Unknown]
  - Muscle tightness [Unknown]
  - Haemorrhage subcutaneous [Unknown]
  - Dehydration [Unknown]
  - Disease progression [Unknown]

NARRATIVE: CASE EVENT DATE: 20140629
